FAERS Safety Report 25023656 (Version 1)
Quarter: 2025Q1

REPORT INFORMATION
  Report Type: Spontaneous
  Country: US (occurrence: None)
  Receive Date: 20250228
  Receipt Date: 20250228
  Transmission Date: 20250409
  Serious: Yes (Other)
  Sender: FDA-CTU
  Company Number: None

PATIENT
  Age: 33 Year
  Sex: Female
  Weight: 60 kg

DRUGS (1)
  1. EFFACLAR [Suspect]
     Active Substance: ADAPALENE
     Route: 061
     Dates: start: 20250216, end: 20250227

REACTIONS (4)
  - Chemical burn [None]
  - Application site pain [None]
  - Application site erythema [None]
  - Application site pruritus [None]

NARRATIVE: CASE EVENT DATE: 20250227
